FAERS Safety Report 8160639-7 (Version None)
Quarter: 2012Q1

REPORT INFORMATION
  Report Type: 
  Country: None (occurrence: None)
  Receive Date: 20120223
  Receipt Date: 20120215
  Transmission Date: 20120608
  Serious: Yes (Other)
  Sender: FDA-Public Use
  Company Number: US-ROCHE-GNE260612

PATIENT
  Sex: Female

DRUGS (6)
  1. MULTI-VITAMINS [Concomitant]
     Indication: PREGNANCY
     Dosage: UNK
  2. SEREVENT [Concomitant]
     Indication: ASTHMA
     Dosage: UNK
  3. XOLAIR [Suspect]
     Indication: ASTHMA
     Dosage: 300 MG, Q4W
     Route: 058
     Dates: start: 20041209
  4. ASMANEX TWISTHALER [Concomitant]
     Indication: ASTHMA
     Dosage: UNK
  5. XOLAIR [Suspect]
  6. ZYRTEC [Concomitant]
     Indication: HYPERSENSITIVITY
     Dosage: UNK

REACTIONS (5)
  - HEART RATE IRREGULAR [None]
  - VENTRICULAR EXTRASYSTOLES [None]
  - PALPITATIONS [None]
  - MATERNAL EXPOSURE DURING PREGNANCY [None]
  - TRICUSPID VALVE INCOMPETENCE [None]
